FAERS Safety Report 21468750 (Version 1)
Quarter: 2022Q4

REPORT INFORMATION
  Report Type: Spontaneous
  Country: CN (occurrence: CN)
  Receive Date: 20221018
  Receipt Date: 20221018
  Transmission Date: 20230113
  Serious: Yes (Other)
  Sender: FDA-Public Use
  Company Number: CN-SUN PHARMACEUTICAL INDUSTRIES LTD-2022R1-359387

PATIENT
  Age: 66 Year
  Sex: Female

DRUGS (1)
  1. MINOCYCLINE [Suspect]
     Active Substance: MINOCYCLINE HYDROCHLORIDE
     Indication: Antibiotic therapy
     Dosage: 100 MILLIGRAM, BID
     Route: 048

REACTIONS (1)
  - Therapy non-responder [Unknown]
